FAERS Safety Report 7102710-4 (Version None)
Quarter: 2010Q4

REPORT INFORMATION
  Report Type: 
  Country: None (occurrence: None)
  Receive Date: 20101115
  Receipt Date: 20101101
  Transmission Date: 20110411
  Serious: Yes (Other)
  Sender: FDA-Public Use
  Company Number: PHHY2010JP52579

PATIENT
  Age: 33 Year
  Sex: Male

DRUGS (8)
  1. VOLTAREN [Suspect]
     Indication: PYREXIA
     Dosage: 25 MG, PRN
     Route: 054
     Dates: start: 20100730, end: 20100806
  2. WARFARIN [Suspect]
     Indication: DEEP VEIN THROMBOSIS
     Dosage: 3 DF, QD
     Route: 048
     Dates: end: 20100806
  3. LENDORMIN [Concomitant]
     Dosage: 1 DF
     Route: 048
     Dates: end: 20100806
  4. CONTOMIN [Concomitant]
     Dosage: 1 DF
     Route: 048
     Dates: start: 20100702, end: 20100806
  5. CORDONIN [Concomitant]
     Route: 048
  6. TAKEPRON [Concomitant]
     Route: 048
  7. LIGHT KAMA [Concomitant]
     Route: 048
  8. MUCOSTA [Concomitant]
     Dosage: UNK
     Route: 048

REACTIONS (9)
  - ALANINE AMINOTRANSFERASE INCREASED [None]
  - ASTHENIA [None]
  - BLOOD ALKALINE PHOSPHATASE INCREASED [None]
  - C-REACTIVE PROTEIN INCREASED [None]
  - CONCOMITANT DISEASE AGGRAVATED [None]
  - GAMMA-GLUTAMYLTRANSFERASE INCREASED [None]
  - HEPATIC FUNCTION ABNORMAL [None]
  - KLEBSIELLA TEST POSITIVE [None]
  - LIVER DISORDER [None]
